FAERS Safety Report 11565501 (Version 1)
Quarter: 2015Q3

REPORT INFORMATION
  Report Type: Spontaneous
  Country: US (occurrence: US)
  Receive Date: 20150916
  Receipt Date: 20150916
  Transmission Date: 20151125
  Serious: No
  Sender: FDA-Public Use
  Company Number: US-ELI_LILLY_AND_COMPANY-US200904007262

PATIENT
  Age: 83 Year
  Sex: Female

DRUGS (4)
  1. AZOPT [Concomitant]
     Active Substance: BRINZOLAMIDE
  2. FORTEO [Suspect]
     Active Substance: TERIPARATIDE
  3. LUMIGAN [Concomitant]
     Active Substance: BIMATOPROST
  4. LIPITOR [Concomitant]
     Active Substance: ATORVASTATIN CALCIUM

REACTIONS (1)
  - Medication error [Recovered/Resolved]

NARRATIVE: CASE EVENT DATE: 200904
